FAERS Safety Report 12391927 (Version 1)
Quarter: 2016Q2

REPORT INFORMATION
  Report Type: Spontaneous
  Country: US (occurrence: US)
  Receive Date: 20160523
  Receipt Date: 20160523
  Transmission Date: 20160815
  Serious: Yes (Disabling, Other)
  Sender: FDA-Public Use
  Company Number: US-ASTRAZENECA-2011SE51458

PATIENT
  Age: 70 Year
  Sex: Female
  Weight: 88 kg

DRUGS (22)
  1. SEROQUEL [Suspect]
     Active Substance: QUETIAPINE FUMARATE
     Indication: DEPRESSION
     Route: 048
  2. SEROQUEL [Suspect]
     Active Substance: QUETIAPINE FUMARATE
     Indication: ANXIETY
     Route: 048
  3. SEROQUEL [Suspect]
     Active Substance: QUETIAPINE FUMARATE
     Indication: SLEEP DISORDER
     Route: 048
  4. SEROQUEL [Suspect]
     Active Substance: QUETIAPINE FUMARATE
     Indication: ANXIETY
     Dosage: 200.0MG UNKNOWN
     Route: 048
  5. SEROQUEL [Suspect]
     Active Substance: QUETIAPINE FUMARATE
     Indication: DEPRESSION
     Dosage: 150.0MG UNKNOWN
     Route: 048
  6. SEROQUEL [Suspect]
     Active Substance: QUETIAPINE FUMARATE
     Indication: ANXIETY
     Dosage: 150.0MG UNKNOWN
     Route: 048
  7. CELEXA [Concomitant]
     Active Substance: CITALOPRAM HYDROBROMIDE
  8. SYNTHROID [Concomitant]
     Active Substance: LEVOTHYROXINE SODIUM
  9. SEROQUEL [Suspect]
     Active Substance: QUETIAPINE FUMARATE
     Indication: ANXIETY
     Route: 048
  10. SEROQUEL [Suspect]
     Active Substance: QUETIAPINE FUMARATE
     Indication: DEPRESSION
     Route: 048
  11. SEROQUEL [Suspect]
     Active Substance: QUETIAPINE FUMARATE
     Indication: DEPRESSION
     Dosage: 300.0MG UNKNOWN
     Route: 048
  12. SEROQUEL [Suspect]
     Active Substance: QUETIAPINE FUMARATE
     Indication: SLEEP DISORDER
     Dosage: 200.0MG UNKNOWN
     Route: 048
  13. SEROQUEL [Suspect]
     Active Substance: QUETIAPINE FUMARATE
     Indication: SLEEP DISORDER
     Dosage: 150.0MG UNKNOWN
     Route: 048
  14. METOPROLOL. [Concomitant]
     Active Substance: METOPROLOL
     Dosage: HS
  15. SEROQUEL [Suspect]
     Active Substance: QUETIAPINE FUMARATE
     Indication: SLEEP DISORDER
     Dosage: 300.0MG UNKNOWN
     Route: 048
  16. TOPAMAX [Concomitant]
     Active Substance: TOPIRAMATE
  17. SEROQUEL [Suspect]
     Active Substance: QUETIAPINE FUMARATE
     Indication: SLEEP DISORDER
     Route: 048
  18. ENAMBRIX [Concomitant]
  19. CLONIPINE [Concomitant]
     Active Substance: CLONAZEPAM
  20. SEROQUEL [Suspect]
     Active Substance: QUETIAPINE FUMARATE
     Indication: ANXIETY
     Dosage: 300.0MG UNKNOWN
     Route: 048
  21. SEROQUEL [Suspect]
     Active Substance: QUETIAPINE FUMARATE
     Indication: DEPRESSION
     Dosage: 200.0MG UNKNOWN
     Route: 048
  22. SUCCOR [Concomitant]
     Dosage: HS

REACTIONS (7)
  - Drug ineffective for unapproved indication [Unknown]
  - Macular degeneration [Unknown]
  - Anxiety [Unknown]
  - Off label use [Unknown]
  - Blindness [Unknown]
  - Insomnia [Unknown]
  - Product use issue [Unknown]
